FAERS Safety Report 5252526-9 (Version None)
Quarter: 2007Q1

REPORT INFORMATION
  Report Type: 
  Country: None (occurrence: None)
  Receive Date: 20070301
  Receipt Date: 20070123
  Transmission Date: 20070707
  Serious: Yes (Hospitalization)
  Sender: FDA-Public Use
  Company Number: US-BRISTOL-MYERS SQUIBB COMPANY-13660501

PATIENT
  Sex: Female

DRUGS (1)
  1. ERBITUX [Suspect]
     Indication: COLON CANCER
     Dates: start: 20060925

REACTIONS (3)
  - BLOOD PRESSURE IMMEASURABLE [None]
  - DYSPNOEA [None]
  - HOT FLUSH [None]
